FAERS Safety Report 9444569 (Version 2)
Quarter: 2013Q3

REPORT INFORMATION
  Report Type: Spontaneous
  Country: US (occurrence: US)
  Receive Date: 20130807
  Receipt Date: 20130823
  Transmission Date: 20140515
  Serious: No
  Sender: FDA-Public Use
  Company Number: US-PFIZER INC-2013228072

PATIENT
  Sex: Male

DRUGS (10)
  1. LYRICA [Suspect]
     Indication: DIABETIC NEPHROPATHY
     Dosage: 50 MG, UNK
     Dates: start: 20130522
  2. CYMBALTA [Suspect]
     Indication: NEUROPATHY PERIPHERAL
     Dosage: 60 MG, UNK
  3. CYMBALTA [Suspect]
     Indication: DIABETIC NEUROPATHY
     Dosage: 60 MG, UNK
  4. LOSARTAN [Concomitant]
     Dosage: 50 MG, UNK
  5. LANTUS [Concomitant]
     Dosage: UNK
  6. LOVASTATIN [Concomitant]
     Dosage: 40 MG, UNK
  7. AMLODIPINE BESILATE [Concomitant]
     Dosage: 5 MG, UNK
  8. ATENOLOL [Concomitant]
     Dosage: 50 MG, UNK
  9. ACETAMINOPHEN W/CODEINE [Concomitant]
     Dosage: 30 MG, UNK
  10. METFORMIN HYDROCHLORIDE [Concomitant]
     Dosage: 1000 MG, UNK

REACTIONS (3)
  - Pain [Unknown]
  - Drug ineffective [Unknown]
  - Miliaria [Unknown]
